FAERS Safety Report 17405763 (Version 1)
Quarter: 2020Q1

REPORT INFORMATION
  Report Type: Spontaneous
  Country: US (occurrence: US)
  Receive Date: 20200212
  Receipt Date: 20200212
  Transmission Date: 20200409
  Serious: No
  Sender: FDA-Public Use
  Company Number: US-AUROBINDO-AUR-APL-2019-002043

PATIENT
  Sex: Female
  Weight: 10 kg

DRUGS (1)
  1. AMOXICILLIN POWDER FOR ORAL SUSPENSION  USP 200 MG/5 ML [Suspect]
     Active Substance: AMOXICILLIN
     Indication: INFECTION
     Dosage: 10 MILLILITER, DAILY
     Route: 065
     Dates: start: 20190105, end: 20190107

REACTIONS (1)
  - Piloerection [Recovered/Resolved]

NARRATIVE: CASE EVENT DATE: 20180107
